FAERS Safety Report 4947312-0 (Version None)
Quarter: 2006Q1

REPORT INFORMATION
  Report Type: 
  Country: None (occurrence: None)
  Receive Date: 20060314
  Receipt Date: 20060301
  Transmission Date: 20060701
  Serious: Yes (Other)
  Sender: FDA-Public Use
  Company Number: 2005075957

PATIENT
  Age: 73 Year
  Sex: Male
  Weight: 77.1115 kg

DRUGS (9)
  1. CELEBREX [Suspect]
     Indication: ARTHRITIS
     Dosage: 200 MG (200 MG, 1 IN 1 D), ORAL
     Route: 048
     Dates: start: 20050101
  2. BEXTRA [Suspect]
     Indication: OSTEOARTHRITIS
     Dosage: 10 MG (10 MG, AS NECESSARY)
  3. PERIOSTAT [Concomitant]
  4. MONOPRIL [Concomitant]
  5. PLAVIX [Concomitant]
  6. PRAVACHOL [Concomitant]
  7. CENTRUM SILVER (ASCORBIC ACID, CALCIUM, MINERALS NOS, RETINOL, TOCOHPH [Concomitant]
  8. VITAMIN C (VITAMIN C) [Concomitant]
  9. ECOTRIN (ACETYLSALICYLIC ACID) [Concomitant]

REACTIONS (4)
  - EMPHYSEMA [None]
  - NECK PAIN [None]
  - STOMACH DISCOMFORT [None]
  - VOMITING [None]
